FAERS Safety Report 5988812-4 (Version None)
Quarter: 2008Q4

REPORT INFORMATION
  Report Type: 
  Country: None (occurrence: None)
  Receive Date: 20081208
  Receipt Date: 20081208
  Transmission Date: 20090506
  Serious: Yes (Hospitalization, Other)
  Sender: FDA-Public Use
  Company Number: None

PATIENT
  Sex: Female
  Weight: 82.1 kg

DRUGS (2)
  1. TYGACIL [Suspect]
     Indication: ENTEROBACTER INFECTION
     Dosage: 50MG Q12H IV
     Route: 042
     Dates: start: 20081129, end: 20081205
  2. TYGACIL [Suspect]
     Indication: STAPHYLOCOCCAL INFECTION
     Dosage: 50MG Q12H IV
     Route: 042
     Dates: start: 20081129, end: 20081205

REACTIONS (1)
  - HYPERBILIRUBINAEMIA [None]
